FAERS Safety Report 24889910 (Version 4)
Quarter: 2025Q2

REPORT INFORMATION
  Report Type: Spontaneous
  Country: US (occurrence: US)
  Receive Date: 20250127
  Receipt Date: 20250610
  Transmission Date: 20250717
  Serious: No
  Sender: BIOGEN
  Company Number: US-BIOGEN-2025BI01296284

PATIENT
  Sex: Male

DRUGS (2)
  1. VUMERITY [Suspect]
     Active Substance: DIROXIMEL FUMARATE
     Indication: Multiple sclerosis
     Dosage: ALSO REPORTED AS 06-JAN-2025?TITRATION DOSING
     Route: 050
     Dates: start: 20250105, end: 20250112
  2. VUMERITY [Suspect]
     Active Substance: DIROXIMEL FUMARATE
     Dosage: START DATE ALSO REPORTED AS 13-JAN-2025?MAINTENANCE DOSE
     Route: 050
     Dates: start: 20250112

REACTIONS (10)
  - Vision blurred [Not Recovered/Not Resolved]
  - Photophobia [Not Recovered/Not Resolved]
  - Fatigue [Not Recovered/Not Resolved]
  - Chromaturia [Unknown]
  - Dyspnoea [Unknown]
  - Constipation [Unknown]
  - Micturition disorder [Unknown]
  - White blood cell count increased [Unknown]
  - Prostate infection [Unknown]
  - Hot flush [Not Recovered/Not Resolved]

NARRATIVE: CASE EVENT DATE: 20250101
